FAERS Safety Report 7262882-8 (Version None)
Quarter: 2011Q1

REPORT INFORMATION
  Report Type: 
  Country: None (occurrence: None)
  Receive Date: 20110130
  Receipt Date: 20100915
  Transmission Date: 20110831
  Serious: No
  Sender: FDA-Public Use
  Company Number: US-ABBOTT-10P-163-0670930-00

PATIENT
  Age: 56 Year
  Sex: Female

DRUGS (9)
  1. CARVEDILOL [Concomitant]
     Indication: CARDIAC DISORDER
  2. RANITIDINE [Concomitant]
     Indication: ABDOMINAL DISCOMFORT
  3. HUMIRA [Suspect]
     Indication: RHEUMATOID ARTHRITIS
     Dates: start: 20100401, end: 20100827
  4. LISINOPRIL [Concomitant]
     Indication: HYPERTENSION
  5. SPIRONOLACTONE [Concomitant]
     Indication: PRODUCT USED FOR UNKNOWN INDICATION
  6. FOLIC ACID [Concomitant]
     Indication: RHEUMATOID ARTHRITIS
  7. METHOTREXATE [Concomitant]
     Indication: RHEUMATOID ARTHRITIS
  8. DIGOXIN [Concomitant]
     Indication: CARDIAC DISORDER
  9. METROMINE [Concomitant]
     Indication: TYPE 2 DIABETES MELLITUS

REACTIONS (2)
  - INFECTION [None]
  - RHEUMATOID ARTHRITIS [None]
